FAERS Safety Report 6492473-8 (Version None)
Quarter: 2009Q4

REPORT INFORMATION
  Report Type: 
  Country: None (occurrence: None)
  Receive Date: 20091214
  Receipt Date: 20091124
  Transmission Date: 20100525
  Serious: No
  Sender: FDA-Public Use
  Company Number: JP-ROCHE-669407

PATIENT
  Sex: Male

DRUGS (3)
  1. TAMIFLU [Suspect]
     Indication: H1N1 INFLUENZA
     Dosage: OVERDOSE THERAPY
     Route: 048
     Dates: start: 20091109, end: 20091109
  2. TAMIFLU [Suspect]
     Route: 048
     Dates: start: 20091108, end: 20091108
  3. TAMIFLU [Suspect]
     Route: 048
     Dates: start: 20091110, end: 20091110

REACTIONS (2)
  - HEADACHE [None]
  - OVERDOSE [None]
